FAERS Safety Report 9752177 (Version 3)
Quarter: 2013Q4

REPORT INFORMATION
  Report Type: Spontaneous
  Country: IT (occurrence: None)
  Receive Date: 20131211
  Receipt Date: 20131224
  Transmission Date: 20140711
  Serious: Yes (Hospitalization, Other)
  Sender: FDA-Public Use
  Company Number: AUR-APL-2013-10323

PATIENT
  Age: 41 Year
  Sex: Female

DRUGS (2)
  1. PAROXETINE [Suspect]
     Indication: ANTIDEPRESSANT THERAPY
     Dosage: 20 MG, 1 D, UNKNOWN
  2. CLARITHROMYCIN (CLARITHROMYCIN) [Concomitant]

REACTIONS (14)
  - Pulmonary toxicity [None]
  - Respiratory failure [None]
  - Respiratory acidosis [None]
  - Stupor [None]
  - Upper respiratory tract infection [None]
  - White blood cell count decreased [None]
  - Lymphopenia [None]
  - Haemoglobin decreased [None]
  - Blood lactate dehydrogenase increased [None]
  - Alveolitis [None]
  - Red blood cell count decreased [None]
  - Platelet count increased [None]
  - Diffuse alveolar damage [None]
  - Restrictive pulmonary disease [None]
